FAERS Safety Report 7948344-0 (Version None)
Quarter: 2011Q4

REPORT INFORMATION
  Report Type: 
  Country: None (occurrence: None)
  Receive Date: 20111123
  Receipt Date: 20111110
  Transmission Date: 20120403
  Serious: Yes (Hospitalization, Disabling)
  Sender: FDA-Public Use
  Company Number: 2011P1010288

PATIENT
  Sex: Female

DRUGS (11)
  1. SPIRONOLACTONE [Concomitant]
  2. PRILOSEC [Suspect]
     Dates: start: 20090901, end: 20090901
  3. ASPIRIN [Concomitant]
  4. DOCUSATE NA [Concomitant]
  5. FUROSEMIDE [Concomitant]
  6. AMOXICILLIN [Suspect]
     Indication: PRODUCT USED FOR UNKNOWN INDICATION
  7. LOVASTATIN [Concomitant]
  8. OMEPRAZOLE [Suspect]
     Dates: start: 20090901, end: 20090901
  9. PLAVIX [Concomitant]
  10. PEPCID [Suspect]
     Dosage: PO
     Route: 048
     Dates: start: 20090701
  11. LISINOPRIL [Concomitant]

REACTIONS (12)
  - ABDOMINAL PAIN UPPER [None]
  - DISBACTERIOSIS [None]
  - DRUG INEFFECTIVE [None]
  - MALAISE [None]
  - UNEVALUABLE EVENT [None]
  - DRUG HYPERSENSITIVITY [None]
  - DECREASED APPETITE [None]
  - DEHYDRATION [None]
  - GASTROINTESTINAL DISORDER [None]
  - ELECTROLYTE IMBALANCE [None]
  - APHAGIA [None]
  - DRUG INTOLERANCE [None]
